FAERS Safety Report 23105705 (Version 1)
Quarter: 2023Q4

REPORT INFORMATION
  Report Type: Spontaneous
  Country: US (occurrence: None)
  Receive Date: 20231023
  Receipt Date: 20231023
  Transmission Date: 20240110
  Serious: Yes (Hospitalization)
  Sender: FDA-Public Use
  Company Number: None

PATIENT
  Age: 74 Year
  Sex: Male

DRUGS (2)
  1. TORSEMIDE [Suspect]
     Active Substance: TORSEMIDE
     Dates: start: 20230406, end: 20230509
  2. LISINOPRIL [Suspect]
     Active Substance: LISINOPRIL
     Dates: start: 20220922, end: 20230509

REACTIONS (4)
  - Knee arthroplasty [None]
  - Cardiac failure congestive [None]
  - Rales [None]
  - Therapy change [None]

NARRATIVE: CASE EVENT DATE: 20230418
